FAERS Safety Report 25927716 (Version 1)
Quarter: 2025Q4

REPORT INFORMATION
  Report Type: Report from Study
  Country: US (occurrence: US)
  Receive Date: 20251016
  Receipt Date: 20251016
  Transmission Date: 20260118
  Serious: Yes (Other)
  Sender: ABBVIE
  Company Number: US-ABBVIE-6501556

PATIENT
  Age: 69 Year
  Sex: Female

DRUGS (1)
  1. IMBRUVICA [Suspect]
     Active Substance: IBRUTINIB
     Indication: Chronic lymphocytic leukaemia
     Route: 048
     Dates: start: 202501

REACTIONS (13)
  - Spondylitis [Not Recovered/Not Resolved]
  - Decreased appetite [Unknown]
  - Headache [Unknown]
  - Gait inability [Unknown]
  - Fear [Unknown]
  - Back pain [Not Recovered/Not Resolved]
  - Constipation [Unknown]
  - Impaired work ability [Unknown]
  - Somnolence [Unknown]
  - Insomnia [Unknown]
  - Weight decreased [Unknown]
  - Pain [Unknown]
  - Gastrointestinal disorder [Unknown]

NARRATIVE: CASE EVENT DATE: 20250101
